FAERS Safety Report 8591087-3 (Version None)
Quarter: 2012Q3

REPORT INFORMATION
  Report Type: 
  Country: None (occurrence: None)
  Receive Date: 20120813
  Receipt Date: 20120806
  Transmission Date: 20120928
  Serious: Yes (Other)
  Sender: FDA-Public Use
  Company Number: US-JNJFOC-20120802846

PATIENT
  Sex: Female
  Weight: 74.84 kg

DRUGS (1)
  1. STELARA [Suspect]
     Indication: PSORIASIS
     Route: 058
     Dates: start: 20111101

REACTIONS (5)
  - BLOOD CHOLESTEROL INCREASED [None]
  - URTICARIA [None]
  - PRURITUS [None]
  - DRUG DOSE OMISSION [None]
  - PSORIASIS [None]
